FAERS Safety Report 7990686-7 (Version None)
Quarter: 2011Q4

REPORT INFORMATION
  Report Type: 
  Country: None (occurrence: None)
  Receive Date: 20111215
  Receipt Date: 20111125
  Transmission Date: 20120403
  Serious: Yes (Hospitalization, Other)
  Sender: FDA-Public Use
  Company Number: JPI-P-018475

PATIENT
  Age: 73 Year
  Sex: Female

DRUGS (3)
  1. XYREM [Suspect]
     Indication: PRODUCT USED FOR UNKNOWN INDICATION
     Dosage: 4.5 GM (2.25 GM, 2 IN 1 D),ORAL;ORAL; 9 GM (4.5 MG, 2 IN 1 D),ORAL
     Route: 048
     Dates: start: 20030101, end: 20030101
  2. XYREM [Suspect]
     Indication: PRODUCT USED FOR UNKNOWN INDICATION
     Dosage: 4.5 GM (2.25 GM, 2 IN 1 D),ORAL;ORAL; 9 GM (4.5 MG, 2 IN 1 D),ORAL
     Route: 048
     Dates: start: 20030320
  3. XYREM [Suspect]
     Indication: PRODUCT USED FOR UNKNOWN INDICATION
     Dosage: 4.5 GM (2.25 GM, 2 IN 1 D),ORAL;ORAL; 9 GM (4.5 MG, 2 IN 1 D),ORAL
     Route: 048
     Dates: start: 20030205

REACTIONS (2)
  - HIP FRACTURE [None]
  - FALL [None]
